FAERS Safety Report 9821362 (Version 1)
Quarter: 2014Q1

REPORT INFORMATION
  Report Type: Spontaneous
  Country: US (occurrence: US)
  Receive Date: 20140116
  Receipt Date: 20140116
  Transmission Date: 20141002
  Serious: No
  Sender: FDA-Public Use
  Company Number: US-GILEAD-2011-0036846

PATIENT
  Age: 23 Year
  Sex: 0

DRUGS (5)
  1. LETAIRIS [Suspect]
     Indication: PRODUCT USED FOR UNKNOWN INDICATION
     Route: 048
     Dates: start: 20080131
  2. REMODULIN [Concomitant]
  3. FLOLAN [Concomitant]
  4. REVATIO [Concomitant]
  5. VENTAVIS [Concomitant]

REACTIONS (2)
  - Fatigue [Unknown]
  - Drug dispensing error [Unknown]
